FAERS Safety Report 5534336-8 (Version None)
Quarter: 2007Q4

REPORT INFORMATION
  Report Type: 
  Country: None (occurrence: None)
  Receive Date: 20071205
  Receipt Date: 20071126
  Transmission Date: 20080405
  Serious: Yes (Other)
  Sender: FDA-Public Use
  Company Number: PHHY2007CL00605

PATIENT
  Age: 52 Year
  Sex: Female

DRUGS (3)
  1. VALSARTAN [Suspect]
     Indication: HYPERTENSION
     Dosage: 80 MG, QD
     Route: 048
     Dates: start: 20070801
  2. RAVOTRIL [Concomitant]
  3. ESCITALOPRAM [Concomitant]

REACTIONS (3)
  - BALANCE DISORDER [None]
  - DEPRESSION [None]
  - HEADACHE [None]
